FAERS Safety Report 10203701 (Version 1)
Quarter: 2014Q2

REPORT INFORMATION
  Report Type: Spontaneous
  Country: US (occurrence: US)
  Receive Date: 20140529
  Receipt Date: 20140529
  Transmission Date: 20141212
  Serious: Yes (Other)
  Sender: FDA-Public Use
  Company Number: US-JNJFOC-20140513157

PATIENT
  Age: 34 Year
  Sex: Female
  Weight: 59.88 kg

DRUGS (1)
  1. TOPAMAX [Suspect]
     Indication: MIGRAINE PROPHYLAXIS
     Route: 048
     Dates: start: 20140310, end: 201403

REACTIONS (3)
  - Sudden visual loss [Recovered/Resolved]
  - Vision blurred [Recovered/Resolved]
  - Intraocular pressure increased [Unknown]
